FAERS Safety Report 21317531 (Version 1)
Quarter: 2022Q3

REPORT INFORMATION
  Report Type: Spontaneous
  Country: US (occurrence: US)
  Receive Date: 20220911
  Receipt Date: 20220911
  Transmission Date: 20221027
  Serious: Yes (Other)
  Sender: FDA-Public Use
  Company Number: US-SA-SAC20220823001090

PATIENT
  Age: 20 Year
  Sex: Female

DRUGS (1)
  1. ALLEGRA [Suspect]
     Active Substance: FEXOFENADINE HYDROCHLORIDE
     Indication: Hypersensitivity
     Dosage: UNK
     Route: 065

REACTIONS (5)
  - Anaphylactic shock [Unknown]
  - Urticaria [Unknown]
  - Erythema [Unknown]
  - Swelling face [Unknown]
  - Peripheral swelling [Unknown]
